FAERS Safety Report 5530790-6 (Version None)
Quarter: 2007Q4

REPORT INFORMATION
  Report Type: 
  Country: None (occurrence: None)
  Receive Date: 20071130
  Receipt Date: 20071126
  Transmission Date: 20080405
  Serious: Yes (Hospitalization, Other)
  Sender: FDA-Public Use
  Company Number: US-MERCK-0708USA00149

PATIENT
  Age: 52 Year
  Sex: Female

DRUGS (1)
  1. FOSAMAX [Suspect]
     Indication: BONE DENSITY DECREASED
     Route: 048
     Dates: start: 20001212

REACTIONS (5)
  - BONE DISORDER [None]
  - CHEST PAIN [None]
  - DYSPEPSIA [None]
  - OSTEOMYELITIS [None]
  - OSTEONECROSIS [None]
